FAERS Safety Report 8538689-8 (Version None)
Quarter: 2012Q3

REPORT INFORMATION
  Report Type: 
  Country: None (occurrence: None)
  Receive Date: 20120726
  Receipt Date: 20120716
  Transmission Date: 20120928
  Serious: Yes (Hospitalization)
  Sender: FDA-Public Use
  Company Number: US-BAYER-2011-073331

PATIENT
  Age: 32 Year
  Sex: Female
  Weight: 88.435 kg

DRUGS (3)
  1. PANTOPRAZOLE [Concomitant]
     Dosage: 40 MG, QD
  2. CARAFATE [Concomitant]
     Dosage: UNK UNK, QD
  3. YAZ [Suspect]
     Indication: PREMENSTRUAL SYNDROME
     Dosage: UNK
     Route: 048
     Dates: start: 20070801, end: 20090101

REACTIONS (9)
  - PAIN [None]
  - ABDOMINAL PAIN [None]
  - DYSPEPSIA [None]
  - CHOLECYSTITIS CHRONIC [None]
  - GALLBLADDER DISORDER [None]
  - GENERAL PHYSICAL HEALTH DETERIORATION [None]
  - EMOTIONAL DISTRESS [None]
  - ANHEDONIA [None]
  - ANXIETY [None]
